FAERS Safety Report 6215896-0 (Version None)
Quarter: 2009Q2

REPORT INFORMATION
  Report Type: 
  Country: None (occurrence: None)
  Receive Date: 20090605
  Receipt Date: 20090528
  Transmission Date: 20091009
  Serious: Yes (Death)
  Sender: FDA-Public Use
  Company Number: BR-EISAI INC.-E3810-02868-SPO-BR

PATIENT
  Age: 72 Year
  Sex: Female
  Weight: 62 kg

DRUGS (1)
  1. PARIET (RABEPRAZOLE) [Suspect]
     Indication: HERNIA
     Route: 048
     Dates: start: 20070101, end: 20090426

REACTIONS (3)
  - CARDIAC ARREST [None]
  - CATARACT [None]
  - MEDICATION ERROR [None]
